FAERS Safety Report 9973908 (Version 1)
Quarter: 2014Q1

REPORT INFORMATION
  Report Type: Report from Study
  Country: US (occurrence: US)
  Receive Date: 20140306
  Receipt Date: 20140306
  Transmission Date: 20141002
  Serious: No
  Sender: FDA-Public Use
  Company Number: US-ABBVIE-13P-163-1154853-00

PATIENT
  Age: 40 Year
  Sex: Male
  Weight: 104.42 kg

DRUGS (20)
  1. HUMIRA [Suspect]
     Indication: CROHN^S DISEASE
     Dosage: STARTING DOSE
     Dates: start: 2012, end: 2012
  2. HUMIRA [Suspect]
     Dosage: SECOND DOSE
     Dates: start: 2012, end: 2012
  3. HUMIRA [Suspect]
     Dates: start: 2012
  4. CYMBALTA [Suspect]
     Indication: BACK PAIN
     Dates: end: 201308
  5. CYMBALTA [Suspect]
     Indication: DEPRESSION
  6. PENTASA [Concomitant]
     Indication: CROHN^S DISEASE
  7. DICYCLOMINE [Concomitant]
     Indication: CROHN^S DISEASE
  8. ALLOPURINOL [Concomitant]
     Indication: GOUT
  9. ALLOPURINOL [Concomitant]
     Indication: INFLAMMATION
  10. LORTAB [Concomitant]
     Indication: PAIN
  11. LORTAB [Concomitant]
     Indication: INFLAMMATION
  12. CHOLESTYRAMINE [Concomitant]
     Indication: CROHN^S DISEASE
  13. PROAIR HFA [Concomitant]
     Indication: ASTHMA
  14. FLOVENT [Concomitant]
     Indication: ASTHMA PROPHYLAXIS
  15. FLUTICASONE [Concomitant]
     Indication: MULTIPLE ALLERGIES
  16. PREDNISONE [Concomitant]
     Indication: GOUT
  17. PREDNISONE [Concomitant]
     Indication: GOUT
  18. DIPHENHYDRAMINE [Concomitant]
     Indication: SEASONAL ALLERGY
  19. VITAMIN D [Concomitant]
     Indication: VITAMIN SUPPLEMENTATION
  20. CALCIUM [Concomitant]
     Indication: VITAMIN SUPPLEMENTATION

REACTIONS (3)
  - Asthenia [Recovered/Resolved]
  - Nausea [Recovered/Resolved]
  - Malaise [Recovered/Resolved]
